FAERS Safety Report 18843381 (Version 2)
Quarter: 2021Q1

REPORT INFORMATION
  Report Type: Spontaneous
  Country: DE (occurrence: DE)
  Receive Date: 20210203
  Receipt Date: 20210218
  Transmission Date: 20210419
  Serious: Yes (Death, Hospitalization, Other)
  Sender: FDA-Public Use
  Company Number: DE-JNJFOC-20210201254

PATIENT
  Age: 74 Year
  Sex: Male

DRUGS (3)
  1. XARELTO [Suspect]
     Active Substance: RIVAROXABAN
     Indication: ATRIAL FIBRILLATION
     Dosage: 20 MG, QD
     Route: 048
     Dates: start: 2014
  2. AMIODARONE [Concomitant]
     Active Substance: AMIODARONE
     Dosage: LONG TERM TREATMENT
  3. XARELTO [Suspect]
     Active Substance: RIVAROXABAN
     Indication: CORONARY ARTERY DISEASE

REACTIONS (8)
  - Cardiogenic shock [Fatal]
  - Circulatory collapse [Unknown]
  - Acute coronary syndrome [Fatal]
  - Dyspnoea [Unknown]
  - Pericardial effusion [Unknown]
  - Syncope [Unknown]
  - Chest pain [Unknown]
  - Pulmonary embolism [Fatal]

NARRATIVE: CASE EVENT DATE: 202101
